FAERS Safety Report 8973233 (Version 1)
Quarter: 2012Q4

REPORT INFORMATION
  Report Type: Report from Study
  Country: JP (occurrence: JP)
  Receive Date: 20121219
  Receipt Date: 20121219
  Transmission Date: 20130627
  Serious: Yes (Life-Threatening)
  Sender: FDA-Public Use
  Company Number: JP-CELGENEUS-087-50794-12121652

PATIENT
  Age: 72 Year
  Sex: Male
  Weight: 52 kg

DRUGS (12)
  1. VIDAZA [Suspect]
     Indication: MYELODYSPLASTIC SYNDROME
     Dosage: 65 Milligram
     Route: 041
     Dates: start: 20110314, end: 20110315
  2. VIDAZA [Suspect]
     Dosage: 65 Milligram
     Route: 041
     Dates: start: 20110324, end: 20110328
  3. VIDAZA [Suspect]
     Dosage: 65 Milligram
     Route: 041
     Dates: start: 20110414, end: 20110420
  4. VIDAZA [Suspect]
     Dosage: 65 Milligram
     Route: 041
     Dates: start: 20110523, end: 20110529
  5. VIDAZA [Suspect]
     Dosage: 65 Milligram
     Route: 041
     Dates: start: 20110620, end: 20110628
  6. MAGMITT [Concomitant]
     Indication: DRUG USE FOR UNKNOWN INDICATION
     Route: 065
  7. ITRIZOLE [Concomitant]
     Indication: DRUG USE FOR UNKNOWN INDICATION
     Route: 065
  8. OMEPRAL [Concomitant]
     Indication: DRUG USE FOR UNKNOWN INDICATION
     Route: 065
  9. MUCOSTA [Concomitant]
     Indication: DRUG USE FOR UNKNOWN INDICATION
     Route: 065
  10. TAMIFLU [Concomitant]
     Indication: DRUG USE FOR UNKNOWN INDICATION
     Route: 065
     Dates: start: 20110316, end: 20110320
  11. BAKTAR [Concomitant]
     Indication: DRUG USE FOR UNKNOWN INDICATION
     Route: 065
  12. GENINAX [Concomitant]
     Indication: DRUG USE FOR UNKNOWN INDICATION
     Route: 065
     Dates: start: 20110622, end: 20110626

REACTIONS (1)
  - Pneumonia [Recovering/Resolving]
